FAERS Safety Report 6229859-2 (Version None)
Quarter: 2009Q2

REPORT INFORMATION
  Report Type: 
  Country: None (occurrence: None)
  Receive Date: 20090615
  Receipt Date: 20090609
  Transmission Date: 20091009
  Serious: Yes (Hospitalization)
  Sender: FDA-Public Use
  Company Number: KR-PFIZER INC-2009226293

PATIENT
  Age: 77 Year

DRUGS (5)
  1. SUNITINIB MALATE [Suspect]
     Indication: RENAL CELL CARCINOMA
     Dosage: 37.5 MG, 1X/DAY
     Route: 048
     Dates: start: 20080813, end: 20080828
  2. FAMOTIDINE [Concomitant]
     Indication: GASTRIC DISORDER
     Dosage: 40 MG, 1X/DAY
     Dates: start: 20080801, end: 20080902
  3. TYLENOL (CAPLET) [Concomitant]
     Indication: PAIN
     Dosage: 1950 MG, 1X/DAY
     Dates: start: 20080819, end: 20080819
  4. NORVASC [Concomitant]
     Indication: HYPERTENSION
     Dosage: 5 MG, 1X/DAY
     Dates: start: 20080826
  5. ULTRACET [Concomitant]
     Indication: PAIN
     Dosage: 150 MG, 1X/DAY
     Dates: start: 20080826, end: 20080905

REACTIONS (1)
  - CHOLECYSTITIS [None]
